FAERS Safety Report 9452454 (Version 1)
Quarter: 2013Q3

REPORT INFORMATION
  Report Type: Spontaneous
  Country: FR (occurrence: FR)
  Receive Date: 20130812
  Receipt Date: 20130812
  Transmission Date: 20140515
  Serious: Yes (Life-Threatening, Hospitalization)
  Sender: FDA-Public Use
  Company Number: FR-JNJFOC-20130803024

PATIENT
  Age: 60 Year
  Sex: Male

DRUGS (8)
  1. XARELTO [Suspect]
     Indication: PRODUCT USED FOR UNKNOWN INDICATION
     Route: 048
     Dates: end: 20130701
  2. PLAVIX [Suspect]
     Indication: PRODUCT USED FOR UNKNOWN INDICATION
     Route: 048
     Dates: end: 20130701
  3. DIAMICRON [Concomitant]
     Route: 048
  4. INEGY [Concomitant]
     Route: 048
  5. LASILIX [Concomitant]
     Route: 048
  6. INEXIUM [Concomitant]
     Route: 048
  7. COVERSYL [Concomitant]
     Route: 048
  8. CARDENSIEL [Concomitant]
     Route: 048

REACTIONS (4)
  - Haemorrhagic anaemia [Recovered/Resolved]
  - Melaena [Recovered/Resolved]
  - Abdominal pain upper [Recovered/Resolved]
  - Haematemesis [Recovered/Resolved]
